FAERS Safety Report 8044175-4 (Version None)
Quarter: 2012Q1

REPORT INFORMATION
  Report Type: 
  Country: None (occurrence: None)
  Receive Date: 20120113
  Receipt Date: 20120110
  Transmission Date: 20120608
  Serious: Yes (Death, Hospitalization)
  Sender: FDA-Public Use
  Company Number: DE-BRISTOL-MYERS SQUIBB COMPANY-15929540

PATIENT
  Age: 70 Year
  Sex: Male
  Weight: 72 kg

DRUGS (1)
  1. IPILIMUMAB [Suspect]
     Indication: MALIGNANT MELANOMA
     Dosage: 3RD DOSE:20JUL11,3MG,225MG
     Route: 042
     Dates: start: 20110531, end: 20110720

REACTIONS (7)
  - ABDOMINAL PAIN [None]
  - DECREASED APPETITE [None]
  - NAUSEA [None]
  - NEOPLASM PROGRESSION [None]
  - MALIGNANT MELANOMA [None]
  - NEOPLASM MALIGNANT [None]
  - MALIGNANT MESENTERIC NEOPLASM [None]
